FAERS Safety Report 5069186-2 (Version None)
Quarter: 2006Q3

REPORT INFORMATION
  Report Type: 
  Country: None (occurrence: None)
  Receive Date: 20060717
  Receipt Date: 20060223
  Transmission Date: 20061208
  Serious: No
  Sender: FDA-Public Use
  Company Number: 2005001859

PATIENT
  Age: 79 Year
  Sex: Female

DRUGS (4)
  1. TARCEVA [Suspect]
     Indication: NON-SMALL CELL LUNG CANCER
     Dosage: 100 MG (QD), ORAL
     Route: 048
     Dates: start: 20050731
  2. AVALI [Concomitant]
  3. LIPITOR [Concomitant]
  4. ZOLOFT [Concomitant]

REACTIONS (11)
  - BACK PAIN [None]
  - DERMATITIS ACNEIFORM [None]
  - DIZZINESS [None]
  - DRY EYE [None]
  - EYE IRRITATION [None]
  - EYE PRURITUS [None]
  - FATIGUE [None]
  - FLATULENCE [None]
  - FREQUENT BOWEL MOVEMENTS [None]
  - NAUSEA [None]
  - VIRAL INFECTION [None]
